FAERS Safety Report 22185536 (Version 2)
Quarter: 2023Q2

REPORT INFORMATION
  Report Type: Spontaneous
  Country: US (occurrence: US)
  Receive Date: 20230407
  Receipt Date: 20230522
  Transmission Date: 20230722
  Serious: Yes (Other)
  Sender: FDA-Public Use
  Company Number: US-009507513-2304USA001855

PATIENT
  Sex: Male

DRUGS (2)
  1. KEYTRUDA [Suspect]
     Active Substance: PEMBROLIZUMAB
     Indication: Hepatocellular carcinoma
     Dosage: UNK
     Dates: end: 20230220
  2. LENVATINIB MESYLATE [Suspect]
     Active Substance: LENVATINIB MESYLATE
     Indication: Hepatocellular carcinoma
     Dosage: UNK
     Route: 048
     Dates: end: 20230326

REACTIONS (4)
  - Malignant neoplasm progression [Unknown]
  - Anger [Unknown]
  - Irritability [Unknown]
  - Restlessness [Unknown]

NARRATIVE: CASE EVENT DATE: 20230101
